FAERS Safety Report 9390818 (Version 1)
Quarter: 2013Q3

REPORT INFORMATION
  Report Type: Spontaneous
  Country: KR (occurrence: KR)
  Receive Date: 20130709
  Receipt Date: 20130709
  Transmission Date: 20140515
  Serious: Yes (Hospitalization, Other)
  Sender: FDA-Public Use
  Company Number: KR-ELI_LILLY_AND_COMPANY-KR201307000977

PATIENT
  Age: 81 Year
  Sex: Female

DRUGS (3)
  1. VANCOMYCIN HYDROCHLORIDE [Suspect]
     Indication: PYREXIA
     Dosage: 1 G, BID
  2. VANCOMYCIN HYDROCHLORIDE [Suspect]
     Indication: STAPHYLOCOCCAL BACTERAEMIA
     Dosage: 1 G, QD
  3. TEICOPLANIN [Suspect]
     Indication: STAPHYLOCOCCAL BACTERAEMIA
     Dosage: 200 MG, QD

REACTIONS (7)
  - Arthritis infective [Recovered/Resolved]
  - Staphylococcal bacteraemia [Recovered/Resolved]
  - Pelvic fracture [Recovered/Resolved]
  - Phlebitis [Recovered/Resolved]
  - Drug ineffective [Unknown]
  - Fall [Recovered/Resolved]
  - Oedema peripheral [None]
